FAERS Safety Report 23912809 (Version 1)
Quarter: 2024Q2

REPORT INFORMATION
  Report Type: Spontaneous
  Country: BR (occurrence: BR)
  Receive Date: 20240529
  Receipt Date: 20240529
  Transmission Date: 20240716
  Serious: Yes (Other)
  Sender: FDA-Public Use
  Company Number: BR-NOVOPROD-1225558

PATIENT
  Age: 542 Month
  Sex: Female

DRUGS (3)
  1. OZEMPIC [Suspect]
     Active Substance: SEMAGLUTIDE
     Dosage: ^39 CLICKS^ OR 0.25 MG
     Dates: start: 20240420
  2. OZEMPIC [Suspect]
     Active Substance: SEMAGLUTIDE
     Indication: Product used for unknown indication
     Dosage: ^39 CLICKS^ OR 0.25 MG (FIRST APPLICATION)
     Dates: start: 20240412
  3. OZEMPIC [Suspect]
     Active Substance: SEMAGLUTIDE
     Dosage: ^39 CLICKS^ OR 0.25 MG
     Dates: start: 20240426

REACTIONS (3)
  - Dental operation [Unknown]
  - Asthenia [Unknown]
  - Off label use [Unknown]
